FAERS Safety Report 19220270 (Version 1)
Quarter: 2021Q2

REPORT INFORMATION
  Report Type: Spontaneous
  Country: JP (occurrence: JP)
  Receive Date: 20210505
  Receipt Date: 20210505
  Transmission Date: 20210717
  Serious: Yes (Other)
  Sender: FDA-Public Use
  Company Number: JP-PFIZER INC-2021447203

PATIENT
  Age: 80 Year
  Sex: Male

DRUGS (1)
  1. ALDACTONE A [Suspect]
     Active Substance: SPIRONOLACTONE
     Indication: HYPERTENSION
     Dosage: 25 MG IN THE MORNING AND NIGHT
     Route: 048

REACTIONS (3)
  - Blood potassium increased [Unknown]
  - Nausea [Unknown]
  - Renal impairment [Unknown]
